FAERS Safety Report 4802751-3 (Version None)
Quarter: 2005Q4

REPORT INFORMATION
  Report Type: 
  Country: None (occurrence: None)
  Receive Date: 20051017
  Receipt Date: 20051017
  Transmission Date: 20060501
  Serious: Yes (Hospitalization)
  Sender: FDA-Public Use
  Company Number: None

PATIENT
  Age: 64 Year
  Sex: Male

DRUGS (26)
  1. WARFARIN [Suspect]
     Indication: PULMONARY EMBOLISM
     Dosage: 7.5MG PO QHS
     Route: 048
     Dates: start: 20050712, end: 20050720
  2. ENOXAPARIN SODIUM [Suspect]
     Indication: PULMONARY EMBOLISM
     Dosage: 135MG SQ BID
     Route: 058
     Dates: start: 20050712, end: 20050720
  3. SIMVASTATIN [Concomitant]
  4. IBUPROFEN [Concomitant]
  5. GEMFIBROZIL [Concomitant]
  6. OMEPRAZOLE [Concomitant]
  7. ALLOPURINOL [Concomitant]
  8. ATENOLOL [Concomitant]
  9. ENOXAPARIN SODIUM [Concomitant]
  10. FUROSEMIDE [Concomitant]
  11. POTASSIUM CHLORIDE [Concomitant]
  12. ROSIGLITAZONE [Concomitant]
  13. WARFARIN NA [Concomitant]
  14. ISOSORBIDE DINITRATE [Concomitant]
  15. GLIPIZIDE [Concomitant]
  16. FOSINOPRIL NA [Concomitant]
  17. MAGNESIUM OXIDE [Concomitant]
  18. CHLORPHENIRAMINE MALEATE [Concomitant]
  19. CLOPIDOGREL BISULFATE [Concomitant]
  20. ACETAMINOPHEN [Concomitant]
  21. CODEINE [Concomitant]
  22. CYCLOBENZAPRINE HCL [Concomitant]
  23. NITROGLYCERIN [Concomitant]
  24. ACETAMINOPHEN [Concomitant]
  25. MULTI-VITAMIN [Concomitant]
  26. ASPIRIN [Concomitant]

REACTIONS (2)
  - ABDOMINAL HAEMATOMA [None]
  - INTERNATIONAL NORMALISED RATIO INCREASED [None]
